FAERS Safety Report 17758818 (Version 2)
Quarter: 2020Q2

REPORT INFORMATION
  Report Type: Spontaneous
  Country: US (occurrence: GB)
  Receive Date: 20200508
  Receipt Date: 20200508
  Transmission Date: 20200714
  Serious: No
  Sender: FDA-Public Use
  Company Number: US-JNJFOC-20200429519

PATIENT
  Sex: Male
  Weight: 79.9 kg

DRUGS (1)
  1. IMODIUM MULTI-SYMPTOM RELIEF [Suspect]
     Active Substance: DIMETHICONE\LOPERAMIDE HYDROCHLORIDE
     Indication: DIARRHOEA
     Dosage: 1 OR 2 TABLET SOMETIME 1 TABLET AND SOMETIME 2 TABLET
     Route: 061
     Dates: start: 20200418

REACTIONS (2)
  - Product use issue [Unknown]
  - Drug ineffective [Unknown]
